FAERS Safety Report 8788822 (Version 4)
Quarter: 2013Q3

REPORT INFORMATION
  Report Type: Report from Study
  Country: JP (occurrence: JP)
  Receive Date: 20120916
  Receipt Date: 20130711
  Transmission Date: 20140515
  Serious: Yes (Hospitalization, Other)
  Sender: FDA-Public Use
  Company Number: JP-009507513-1208JPN010739

PATIENT
  Age: 59 Year
  Sex: Female
  Weight: 60 kg

DRUGS (9)
  1. PEGINTRON [Suspect]
     Indication: CHRONIC HEPATITIS C
     Dosage: , DAILY DOSE UNKNOWN1 MICROGRAM PER KILOGRAM, QW
     Route: 058
     Dates: start: 20120619, end: 20120723
  2. PEGINTRON [Suspect]
     Dosage: , DAILY DOSE UNKNOWN0.8 MICROGRAM PER KILOGRAM, QW
     Route: 058
     Dates: start: 20120730, end: 20120814
  3. PEGINTRON [Suspect]
     Dosage: , DAILY DOSE UNKNOWN0.66 MICROGRAM PER KILOGRAM, QW
     Route: 058
     Dates: start: 20120828, end: 20120904
  4. REBETOL [Suspect]
     Indication: CHRONIC HEPATITIS C
     Dosage: 200 MG, QD
     Route: 048
     Dates: start: 20120619, end: 20120816
  5. REBETOL [Suspect]
     Dosage: 200 MG, QD
     Route: 048
     Dates: start: 20120828, end: 20120910
  6. TELAVIC [Suspect]
     Indication: CHRONIC HEPATITIS C
     Dosage: 2250 MG, QD
     Route: 048
     Dates: start: 20120619, end: 20120703
  7. TELAVIC [Suspect]
     Dosage: 1500 MG, QD
     Route: 048
     Dates: start: 20120704, end: 20120720
  8. TELAVIC [Suspect]
     Dosage: 750 MG, QD
     Route: 048
     Dates: start: 20120721, end: 20120816
  9. TELAVIC [Suspect]
     Dosage: 750 MG, QD
     Route: 048
     Dates: start: 20120828, end: 20120910

REACTIONS (5)
  - Haemolytic anaemia [Not Recovered/Not Resolved]
  - Haemolytic anaemia [Not Recovered/Not Resolved]
  - Thrombocytopenia [Not Recovered/Not Resolved]
  - Renal failure acute [Recovered/Resolved]
  - Thrombocytopenia [Not Recovered/Not Resolved]
